FAERS Safety Report 8481285-1 (Version None)
Quarter: 2012Q3

REPORT INFORMATION
  Report Type: 
  Country: None (occurrence: None)
  Receive Date: 20120702
  Receipt Date: 20120628
  Transmission Date: 20120928
  Serious: Yes (Other)
  Sender: FDA-Public Use
  Company Number: US-PFIZER INC-2012156180

PATIENT
  Sex: Male

DRUGS (2)
  1. ADDERALL 5 [Interacting]
     Dosage: 120 MG, UNK
     Dates: start: 20100101
  2. PRISTIQ [Suspect]
     Dosage: 50 MG, UNK
     Dates: start: 20100101

REACTIONS (3)
  - INHIBITORY DRUG INTERACTION [None]
  - DEPRESSION [None]
  - DRUG EFFECT DECREASED [None]
